FAERS Safety Report 5639788-0 (Version None)
Quarter: 2008Q1

REPORT INFORMATION
  Report Type: 
  Country: None (occurrence: None)
  Receive Date: 20080227
  Receipt Date: 20080225
  Transmission Date: 20080703
  Serious: Yes (Hospitalization)
  Sender: FDA-Public Use
  Company Number: AT-BRISTOL-MYERS SQUIBB COMPANY-14049670

PATIENT
  Age: 53 Year
  Sex: Male
  Weight: 72 kg

DRUGS (6)
  1. CARBOPLATIN [Suspect]
     Indication: SMALL CELL LUNG CANCER EXTENSIVE STAGE
     Dosage: DOSAGE FORM- 5 AREA UNDER CURVE; STARTED ON 18-OCT-2007; LAST DOSE BEFORE EVENT WAS ON 20-DEC-2007
     Route: 065
     Dates: start: 20071220, end: 20071220
  2. ETOPOSIDE [Suspect]
     Indication: SMALL CELL LUNG CANCER EXTENSIVE STAGE
     Dosage: STARTED ON 18-OCT-2007; LAST DOSE BEFORE EVENT GIVEN ON 22-DEC-2007; DAYS 1 AND 3 EVERY 21 DAYS
     Route: 065
     Dates: start: 20071222, end: 20071222
  3. BUPRENORPHINE HCL [Concomitant]
     Indication: CHEST PAIN
     Dates: start: 20070911
  4. PANTOPRAZOLE [Concomitant]
     Indication: PROPHYLAXIS
     Dates: start: 20070927
  5. DARBEPOETIN ALFA [Concomitant]
     Indication: ANAEMIA
     Dates: start: 20071222
  6. CYANOCOBALAMIN [Concomitant]
     Dates: start: 20071011, end: 20071011

REACTIONS (1)
  - PULMONARY EMBOLISM [None]
